FAERS Safety Report 15128840 (Version 1)
Quarter: 2018Q3

REPORT INFORMATION
  Report Type: Spontaneous
  Country: US (occurrence: US)
  Receive Date: 20180711
  Receipt Date: 20180711
  Transmission Date: 20181010
  Serious: Yes (Hospitalization, Other)
  Sender: FDA-Public Use
  Company Number: US-BAXTER-2018BAX018703

PATIENT
  Age: 71 Year
  Sex: Male
  Weight: 90.7 kg

DRUGS (5)
  1. AMIODARONE [Concomitant]
     Active Substance: AMIODARONE
     Indication: PRODUCT USED FOR UNKNOWN INDICATION
     Route: 065
  2. LIDOCAINE HYDROCHLORIDE AND 5% DEXTROSE INJECTION, USP [Suspect]
     Active Substance: LIDOCAINE HYDROCHLORIDE
     Dosage: CONTINUOUS INFUSION
     Route: 041
  3. LIDOCAINE HYDROCHLORIDE AND 5% DEXTROSE INJECTION, USP [Suspect]
     Active Substance: LIDOCAINE HYDROCHLORIDE
     Dosage: CONTINUOUS INFUSION
     Route: 041
  4. LIDOCAINE HYDROCHLORIDE AND 5% DEXTROSE INJECTION, USP [Suspect]
     Active Substance: LIDOCAINE HYDROCHLORIDE
     Indication: VENTRICULAR TACHYCARDIA
     Dosage: BOLUS, (1 MG/KG) ROUGHLY 30 MINUTES
     Route: 040
  5. MEXILETINE [Suspect]
     Active Substance: MEXILETINE
     Indication: VENTRICULAR TACHYCARDIA
     Dosage: SINGLE AFTERNOON DOSE
     Route: 065

REACTIONS (7)
  - Delirium [Recovering/Resolving]
  - Toxicity to various agents [Unknown]
  - Neurotoxicity [Unknown]
  - Amnesia [Unknown]
  - Incorrect drug administration duration [Unknown]
  - Drug interaction [Unknown]
  - Drug level increased [Unknown]
